FAERS Safety Report 8708780 (Version 2)
Quarter: 2013Q4

REPORT INFORMATION
  Report Type: Spontaneous
  Country: US (occurrence: US)
  Receive Date: 20120806
  Receipt Date: 20131101
  Transmission Date: 20140711
  Serious: Yes (Life-Threatening, Hospitalization)
  Sender: FDA-Public Use
  Company Number: US-009507513-1208USA001202

PATIENT
  Sex: 0

DRUGS (1)
  1. INTEGRILIN [Suspect]

REACTIONS (1)
  - Thrombocytopenia [Unknown]
